FAERS Safety Report 9494041 (Version 2)
Quarter: 2013Q3

REPORT INFORMATION
  Report Type: Spontaneous
  Country: CA (occurrence: None)
  Receive Date: 20130827
  Receipt Date: 20130828
  Transmission Date: 20140515
  Serious: Yes (Hospitalization)
  Sender: FDA-Public Use
  Company Number: JPI-P-034631

PATIENT
  Age: 65 Year
  Sex: Female

DRUGS (6)
  1. XYREM (500 MILLIGRAM/MILLILITERS, SOLUTION) (SODIUM OXYBATE) [Suspect]
     Indication: CATAPLEXY
     Dosage: 3 GM 2 IN 1 D
     Route: 048
     Dates: start: 20090326, end: 20130715
  2. PANTOPREZOL [Concomitant]
  3. DOCUSATE [Concomitant]
  4. ACETAMINOPHEN [Concomitant]
  5. LEVOTHYROXINE SODIUM [Concomitant]
  6. AMITRIPTYLINE [Concomitant]

REACTIONS (1)
  - Aortic surgery [None]
